FAERS Safety Report 5097918-6 (Version None)
Quarter: 2006Q3

REPORT INFORMATION
  Report Type: 
  Country: None (occurrence: None)
  Receive Date: 20060905
  Receipt Date: 20060905
  Transmission Date: 20061208
  Serious: Yes (Life-Threatening, Hospitalization)
  Sender: FDA-Public Use
  Company Number: None

PATIENT
  Sex: Female
  Weight: 114 kg

DRUGS (1)
  1. RECOMBINANT FACTOR 7   4.8 MG NOVO NORDISK [Suspect]
     Indication: INTERNATIONAL NORMALISED RATIO INCREASED
     Dosage: 4.8 MG 3 DOSES IV BOLUS
     Route: 040
     Dates: start: 20060827, end: 20060828

REACTIONS (2)
  - BASILAR ARTERY THROMBOSIS [None]
  - CEREBRAL INFARCTION [None]
